FAERS Safety Report 11030999 (Version 1)
Quarter: 2015Q2

REPORT INFORMATION
  Report Type: Spontaneous
  Country: US (occurrence: None)
  Receive Date: 20150414
  Receipt Date: 20150414
  Transmission Date: 20150821
  Serious: No
  Sender: FDA-Public Use
  Company Number: None

PATIENT
  Age: 57 Year
  Sex: Female

DRUGS (8)
  1. DENTA 5000 PLUS [Concomitant]
     Active Substance: SODIUM FLUORIDE
  2. RICOLA COUGH DROPS [Concomitant]
     Active Substance: HERBALS\MENTHOL
  3. GENERIC PLAQUENIL (HYDROXYCHLOROQUINE) [Concomitant]
  4. MOTRIN [Concomitant]
     Active Substance: IBUPROFEN
  5. BIOTENE ORAL RINSE [Concomitant]
  6. MIRVASO [Suspect]
     Active Substance: BRIMONIDINE TARTRATE
     Indication: ERYTHEMA
     Dosage: APPLY PEA-SIZED AMOUNT, APPLIED TO A SURFACE USUALLY THE SKIN
     Route: 061
     Dates: start: 20150325, end: 20150411
  7. MUCINEX DM [Concomitant]
     Active Substance: DEXTROMETHORPHAN HYDROBROMIDE\GUAIFENESIN
  8. ALBUTEROL. [Concomitant]
     Active Substance: ALBUTEROL

REACTIONS (3)
  - Condition aggravated [None]
  - Erythema [None]
  - Application site erythema [None]

NARRATIVE: CASE EVENT DATE: 20150412
